FAERS Safety Report 6085005-X (Version None)
Quarter: 2009Q1

REPORT INFORMATION
  Report Type: 
  Country: None (occurrence: None)
  Receive Date: 20090220
  Receipt Date: 20090211
  Transmission Date: 20090719
  Serious: Yes (Hospitalization)
  Sender: FDA-Public Use
  Company Number: US-AMGEN-QUU310407

PATIENT
  Sex: Male
  Weight: 99.9 kg

DRUGS (2)
  1. ENBREL [Suspect]
     Indication: RHEUMATOID ARTHRITIS
     Route: 058
     Dates: start: 20070223
  2. METHOTREXATE [Concomitant]
     Route: 048

REACTIONS (2)
  - ARTHRITIS [None]
  - MEMORY IMPAIRMENT [None]
